FAERS Safety Report 5958177-2 (Version None)
Quarter: 2008Q4

REPORT INFORMATION
  Report Type: 
  Country: None (occurrence: None)
  Receive Date: 20081117
  Receipt Date: 20081117
  Transmission Date: 20090506
  Serious: Yes (Other)
  Sender: FDA-Public Use
  Company Number: None

PATIENT
  Age: 33 Year
  Sex: Female
  Weight: 88.3 kg

DRUGS (1)
  1. FAT EMULSION INJ [Suspect]
     Indication: MALNUTRITION
     Dosage: 250ML DAILY IV DRIP
     Route: 041
     Dates: start: 20081002, end: 20081002

REACTIONS (2)
  - RASH [None]
  - SWOLLEN TONGUE [None]
